FAERS Safety Report 10424177 (Version 1)
Quarter: 2014Q3

REPORT INFORMATION
  Report Type: Spontaneous
  Country: CA (occurrence: CA)
  Receive Date: 20140902
  Receipt Date: 20140902
  Transmission Date: 20150326
  Serious: Yes (Other)
  Sender: FDA-Public Use
  Company Number: CA-ELI_LILLY_AND_COMPANY-CA201408008301

PATIENT
  Sex: Female

DRUGS (2)
  1. QUINIDINE GLUCONATE. [Suspect]
     Active Substance: QUINIDINE GLUCONATE
     Indication: ARRHYTHMIA
     Route: 065
  2. MEXILETINE [Concomitant]
     Active Substance: MEXILETINE

REACTIONS (1)
  - Cardiovascular disorder [Unknown]
